FAERS Safety Report 15158950 (Version 2)
Quarter: 2018Q3

REPORT INFORMATION
  Report Type: Report from Study
  Country: JP (occurrence: JP)
  Receive Date: 20180718
  Receipt Date: 20180809
  Transmission Date: 20181010
  Serious: Yes (Hospitalization, Other)
  Sender: FDA-Public Use
  Company Number: JP-ROCHE-2156497

PATIENT
  Age: 74 Year
  Sex: Male

DRUGS (1)
  1. ATEZOLIZUMAB. [Suspect]
     Active Substance: ATEZOLIZUMAB
     Indication: NON-SMALL CELL LUNG CANCER
     Route: 041
     Dates: start: 20180615, end: 20180615

REACTIONS (3)
  - Interstitial lung disease [Not Recovered/Not Resolved]
  - Lymphangiosis carcinomatosa [Unknown]
  - Cancer pain [Unknown]

NARRATIVE: CASE EVENT DATE: 20180615
